FAERS Safety Report 5609191-8 (Version None)
Quarter: 2008Q1

REPORT INFORMATION
  Report Type: 
  Country: None (occurrence: None)
  Receive Date: 20080131
  Receipt Date: 20080123
  Transmission Date: 20080703
  Serious: Yes (Other)
  Sender: FDA-Public Use
  Company Number: US-ASTRAZENECA-2008UW01653

PATIENT
  Sex: Female

DRUGS (2)
  1. PULMICORT [Suspect]
     Route: 055
  2. SEREVENT [Suspect]

REACTIONS (1)
  - CARDIAC DISORDER [None]
